FAERS Safety Report 23633608 (Version 1)
Quarter: 2024Q1

REPORT INFORMATION
  Report Type: Spontaneous
  Country: CA (occurrence: CA)
  Receive Date: 20240314
  Receipt Date: 20240314
  Transmission Date: 20240410
  Serious: Yes (Death, Hospitalization, Other)
  Sender: FDA-Public Use
  Company Number: CA-TEVA-VS-3169450

PATIENT
  Age: 25 Year
  Sex: Female

DRUGS (5)
  1. METHOTREXATE SODIUM [Suspect]
     Active Substance: METHOTREXATE SODIUM
     Indication: Haemophagocytic lymphohistiocytosis
     Route: 037
  2. PREDNISOLONE [Suspect]
     Active Substance: PREDNISOLONE
     Indication: Product used for unknown indication
     Route: 065
  3. ETOPOSIDE [Suspect]
     Active Substance: ETOPOSIDE
     Indication: Haemophagocytic lymphohistiocytosis
     Route: 065
  4. CYCLOSPORINE [Suspect]
     Active Substance: CYCLOSPORINE
     Indication: Haemophagocytic lymphohistiocytosis
     Route: 065
  5. DEXAMETHASONE [Suspect]
     Active Substance: DEXAMETHASONE
     Indication: Familial haemophagocytic lymphohistiocytosis
     Dosage: DOSE FORM: SOLUTION INTRA- ARTICULAR, ?DESCRIPTION: DEXAMETHASONE SODIUM PHOSPHATE INJECTION USP
     Route: 065

REACTIONS (6)
  - Death [Fatal]
  - Bacterial sepsis [Fatal]
  - Fungal infection [Fatal]
  - Infection [Fatal]
  - Drug ineffective [Fatal]
  - Off label use [Fatal]
